FAERS Safety Report 7035531-1 (Version None)
Quarter: 2010Q4

REPORT INFORMATION
  Report Type: 
  Country: None (occurrence: None)
  Receive Date: 20101008
  Receipt Date: 20100927
  Transmission Date: 20110411
  Serious: Yes (Hospitalization)
  Sender: FDA-Public Use
  Company Number: PHHY2010CN65319

PATIENT
  Age: 25 Year
  Sex: Male

DRUGS (4)
  1. CYCLOSPORINE [Suspect]
     Dosage: 5 MG/KG/D
     Route: 048
  2. CHLORAMPHENICOL TRIAMCINOLONE ACETONIDE [Concomitant]
     Route: 061
  3. WHITE PETROLEUM [Concomitant]
     Route: 061
  4. CALCIPOTRIOL [Concomitant]
     Dosage: UNK

REACTIONS (10)
  - ACANTHOSIS [None]
  - CONDITION AGGRAVATED [None]
  - HEART RATE INCREASED [None]
  - NEUTROPHIL COUNT DECREASED [None]
  - PARAKERATOSIS [None]
  - PRURITUS [None]
  - PUSTULAR PSORIASIS [None]
  - PYREXIA [None]
  - RASH MACULO-PAPULAR [None]
  - SKIN OEDEMA [None]
